FAERS Safety Report 12662871 (Version 1)
Quarter: 2016Q3

REPORT INFORMATION
  Report Type: Spontaneous
  Country: US (occurrence: None)
  Receive Date: 20160817
  Receipt Date: 20160817
  Transmission Date: 20161109
  Serious: No
  Sender: FDA-Public Use
  Company Number: None

PATIENT
  Age: 84 Year
  Sex: Female
  Weight: 56.7 kg

DRUGS (6)
  1. HEPARIN (BLOOD THINNER) [Suspect]
     Active Substance: HEPARIN SODIUM
     Indication: ANTICOAGULANT THERAPY
     Dates: start: 20151024
  2. VITAMIN C [Concomitant]
     Active Substance: ASCORBIC ACID
  3. VITAMIN B [Concomitant]
     Active Substance: VITAMIN B
  4. PRESERVISION [Concomitant]
     Active Substance: MINERALS\VITAMINS
  5. TYLENOL [Concomitant]
     Active Substance: ACETAMINOPHEN
  6. LODIPINE (AMLODIPINE BESYLATE) [Concomitant]
     Active Substance: AMLODIPINE BESYLATE

REACTIONS (2)
  - Wound necrosis [None]
  - Thrombosis [None]

NARRATIVE: CASE EVENT DATE: 20151030
